FAERS Safety Report 8251907-9 (Version None)
Quarter: 2012Q2

REPORT INFORMATION
  Report Type: 
  Country: None (occurrence: None)
  Receive Date: 20120402
  Receipt Date: 20120326
  Transmission Date: 20120825
  Serious: Yes (Death)
  Sender: FDA-Public Use
  Company Number: JP-PFIZER INC-2012060030

PATIENT
  Sex: Female

DRUGS (1)
  1. SOLU-CORTEF [Suspect]
     Indication: ORGANISING PNEUMONIA
     Dosage: 200 ML/DAY

REACTIONS (3)
  - NEUTROPHIL COUNT INCREASED [None]
  - LYMPHOPENIA [None]
  - WHITE BLOOD CELL COUNT INCREASED [None]
